FAERS Safety Report 6665523-3 (Version None)
Quarter: 2010Q2

REPORT INFORMATION
  Report Type: 
  Country: None (occurrence: None)
  Receive Date: 20100402
  Receipt Date: 20100324
  Transmission Date: 20101027
  Serious: Yes (Other)
  Sender: FDA-Public Use
  Company Number: JP-JNJFOC-20081006722

PATIENT
  Sex: Female

DRUGS (16)
  1. REMICADE [Suspect]
     Indication: RHEUMATOID ARTHRITIS
     Dosage: ON FOR APPROXIMATELY 4 YEARS
     Route: 042
  2. REMICADE [Suspect]
     Dosage: ON FOR APPROXIMATELY 4 YEARS
     Route: 042
  3. REMICADE [Suspect]
     Dosage: ON FOR APPROXIMATELY 4 YEARS
     Route: 042
  4. REMICADE [Suspect]
     Dosage: ON FOR APPROXIMATELY 4 YEARS
     Route: 042
  5. REMICADE [Suspect]
     Dosage: ON FOR APPROXIMATELY 4 YEARS
     Route: 042
  6. REMICADE [Suspect]
     Dosage: ON FOR APPROXIMATELY 4 YEARS
     Route: 042
  7. REMICADE [Suspect]
     Dosage: ON FOR APPROXIMATELY 4 YEARS   SEQUENCE NUMBER OF DOSE NOT REPORTED
     Route: 042
  8. RHEUMATREX [Suspect]
     Indication: RHEUMATOID ARTHRITIS
     Dosage: 10 YEAR USE
     Route: 048
  9. RHEUMATREX [Suspect]
     Dosage: 10 YEAR USE
     Route: 048
  10. METHOTREXATE [Suspect]
     Indication: RHEUMATOID ARTHRITIS
     Route: 048
  11. METHOTREXATE [Suspect]
     Route: 048
  12. RIMATIL [Concomitant]
     Indication: RHEUMATOID ARTHRITIS
     Route: 048
  13. PREDNISOLONE [Concomitant]
     Indication: RHEUMATOID ARTHRITIS
  14. NORVASC [Concomitant]
     Route: 048
  15. MARZULENE [Concomitant]
     Route: 048
  16. LOXONIN [Concomitant]
     Route: 048

REACTIONS (2)
  - FOLLICLE CENTRE LYMPHOMA, FOLLICULAR GRADE I, II, III [None]
  - THERAPEUTIC RESPONSE DECREASED [None]
